FAERS Safety Report 4919638-8 (Version None)
Quarter: 2006Q1

REPORT INFORMATION
  Report Type: 
  Country: None (occurrence: None)
  Receive Date: 20060113
  Receipt Date: 20051118
  Transmission Date: 20060701
  Serious: No
  Sender: FDA-Public Use
  Company Number: 2005SP004067

PATIENT
  Age: 81 Year
  Sex: Female
  Weight: 62.1428 kg

DRUGS (3)
  1. LUNESTA [Suspect]
     Dosage: 2 MG;ORAL, 3 MG;ORAL
     Route: 048
     Dates: start: 20051114, end: 20050101
  2. LUNESTA [Suspect]
     Dosage: 2 MG;ORAL, 3 MG;ORAL
     Route: 048
     Dates: start: 20051101, end: 20051113
  3. FOSAMAX [Concomitant]

REACTIONS (3)
  - DRUG INEFFECTIVE [None]
  - HYPERTENSION [None]
  - INSOMNIA [None]
